FAERS Safety Report 16655759 (Version 2)
Quarter: 2019Q3

REPORT INFORMATION
  Report Type: Report from Study
  Country: CR (occurrence: CR)
  Receive Date: 20190801
  Receipt Date: 20190828
  Transmission Date: 20191004
  Serious: Yes (Hospitalization, Other)
  Sender: FDA-Public Use
  Company Number: PHHY2018CR012755

PATIENT
  Age: 41 Year
  Sex: Female
  Weight: 80 kg

DRUGS (2)
  1. SCAPHO [Suspect]
     Active Substance: SECUKINUMAB
     Indication: ANKYLOSING SPONDYLITIS
     Dosage: 300 MG, UNK
     Route: 065
     Dates: start: 201709
  2. SCAPHO [Suspect]
     Active Substance: SECUKINUMAB
     Indication: PSORIATIC ARTHROPATHY
     Dosage: 150 MG, UNK
     Route: 065

REACTIONS (18)
  - Joint dislocation [Unknown]
  - Road traffic accident [Unknown]
  - Arthralgia [Unknown]
  - Nasal injury [Unknown]
  - Breast mass [Unknown]
  - Pyrexia [Unknown]
  - Ill-defined disorder [Unknown]
  - Back pain [Unknown]
  - Influenza [Unknown]
  - Musculoskeletal pain [Unknown]
  - Insomnia [Unknown]
  - Photophobia [Unknown]
  - Malaise [Unknown]
  - Bronchitis [Unknown]
  - Hypokinesia [Unknown]
  - Pneumonia [Recovered/Resolved]
  - Inguinal hernia [Unknown]
  - Therapeutic response shortened [Unknown]

NARRATIVE: CASE EVENT DATE: 20180524
